FAERS Safety Report 24881601 (Version 2)
Quarter: 2025Q1

REPORT INFORMATION
  Report Type: Spontaneous
  Country: JP (occurrence: JP)
  Receive Date: 20250124
  Receipt Date: 20250212
  Transmission Date: 20250408
  Serious: Yes (Death, Other)
  Sender: TAKEDA
  Company Number: JP-TAKEDA-2024TJP017691

PATIENT
  Age: 65 Year
  Sex: Female
  Weight: 60.3 kg

DRUGS (8)
  1. FRUZAQLA [Suspect]
     Active Substance: FRUQUINTINIB
     Indication: Colon cancer
     Dosage: 5 MILLIGRAM, QD
     Dates: start: 20241126, end: 20241206
  2. FRUZAQLA [Suspect]
     Active Substance: FRUQUINTINIB
     Dosage: 4 MILLIGRAM, QD
     Dates: start: 20241210, end: 20241229
  3. VONOPRAZAN FUMARATE [Concomitant]
     Active Substance: VONOPRAZAN FUMARATE
     Dosage: 10 MILLIGRAM, QD
     Dates: start: 20211227
  4. METOCLOPRAMIDE [Concomitant]
     Active Substance: METOCLOPRAMIDE
     Dosage: 10 MILLIGRAM, TID
  5. MIYA-BM [Concomitant]
     Active Substance: CLOSTRIDIUM BUTYRICUM SPORES STRAIN M-55
     Dosage: 1 DOSAGE FORM, TID
  6. URSODIOL [Concomitant]
     Active Substance: URSODIOL
     Indication: Hepatic function abnormal
     Dosage: 100 MILLIGRAM, TID
     Dates: start: 20241015
  7. LOXOPROFEN SODIUM [Concomitant]
     Active Substance: LOXOPROFEN SODIUM
     Dosage: 100 MILLIGRAM, QD
  8. LUNESTA [Concomitant]
     Active Substance: ESZOPICLONE
     Dosage: 2 MILLIGRAM, QD

REACTIONS (7)
  - Emphysematous cholecystitis [Fatal]
  - Intestinal ischaemia [Fatal]
  - Colon cancer [Fatal]
  - Hypothyroidism [Unknown]
  - Nausea [Unknown]
  - Blood bilirubin increased [Unknown]
  - Malaise [Unknown]

NARRATIVE: CASE EVENT DATE: 20241201
